FAERS Safety Report 5001593-6 (Version None)
Quarter: 2006Q2

REPORT INFORMATION
  Report Type: 
  Country: None (occurrence: None)
  Receive Date: 20060511
  Receipt Date: 20060511
  Transmission Date: 20061013
  Serious: Yes (Other)
  Sender: FDA-Public Use
  Company Number: None

PATIENT
  Age: 54 Year
  Sex: Female
  Weight: 53.0709 kg

DRUGS (1)
  1. LEVAQUIN [Suspect]
     Indication: INFECTED CYST
     Dosage: ONE TABLET   ONCE A DAY   PO
     Route: 048
     Dates: start: 20060412, end: 20060504

REACTIONS (11)
  - ANGER [None]
  - ARTHRALGIA [None]
  - FALL [None]
  - HYPOAESTHESIA [None]
  - INSOMNIA [None]
  - LABELLED DRUG-DRUG INTERACTION MEDICATION ERROR [None]
  - NERVE COMPRESSION [None]
  - PAIN IN EXTREMITY [None]
  - SHOULDER PAIN [None]
  - SPINAL FUSION SURGERY [None]
  - STUPOR [None]
